FAERS Safety Report 9172544 (Version 2)
Quarter: 2013Q1

REPORT INFORMATION
  Report Type: Report from Study
  Country: CN (occurrence: CN)
  Receive Date: 20130319
  Receipt Date: 20130322
  Transmission Date: 20140127
  Serious: Yes (Other)
  Sender: FDA-Public Use
  Company Number: CN-009507513-1303CHN008032

PATIENT
  Age: 56 Year
  Sex: Female
  Weight: 77.8 kg

DRUGS (4)
  1. SITAGLIPTIN PHOSPHATE [Suspect]
     Indication: TYPE 2 DIABETES MELLITUS
     Dosage: UNK
     Dates: start: 20121213, end: 20121225
  2. SITAGLIPTIN PHOSPHATE [Suspect]
     Dosage: UNK
     Dates: start: 20121226, end: 20121226
  3. GLICLAZIDE [Concomitant]
     Indication: DIABETES MELLITUS
     Dosage: 90 MG, QD
     Route: 048
     Dates: start: 201107
  4. METFORMIN HYDROCHLORIDE [Concomitant]
     Indication: DIABETES MELLITUS
     Dosage: 0.5 G, TID
     Route: 048
     Dates: start: 201107

REACTIONS (1)
  - Pneumonia [Unknown]
